FAERS Safety Report 14345690 (Version 1)
Quarter: 2018Q1

REPORT INFORMATION
  Report Type: Spontaneous
  Country: US (occurrence: US)
  Receive Date: 20180103
  Receipt Date: 20180103
  Transmission Date: 20180509
  Serious: No
  Sender: FDA-Public Use
  Company Number: US-TARO-2017TAR00246

PATIENT
  Sex: Male

DRUGS (1)
  1. HYDROCORTISONE CREAM USP 2.5% [Suspect]
     Active Substance: HYDROCORTISONE
     Indication: HAEMORRHOIDS
     Dosage: USED PRODUCT MAYBE 2 TIMES
     Route: 061
     Dates: end: 201704

REACTIONS (3)
  - Application site pain [Recovering/Resolving]
  - Application site vesicles [Recovering/Resolving]
  - Off label use [Recovered/Resolved]
